FAERS Safety Report 5654219-2 (Version None)
Quarter: 2008Q1

REPORT INFORMATION
  Report Type: 
  Country: None (occurrence: None)
  Receive Date: 20080304
  Receipt Date: 20080226
  Transmission Date: 20080703
  Serious: Yes (Other)
  Sender: FDA-Public Use
  Company Number: US-WYE-H02819408

PATIENT
  Age: 47 Year
  Sex: Female

DRUGS (2)
  1. CENTRUM (MULTIVITAMIN/MULTIMINERAL, TABLET) [Suspect]
     Indication: NUTRITIONAL SUPPORT
     Dosage: 1 TABLET 1X PER 1 DAY ORAL
     Route: 048
     Dates: start: 20080201, end: 20080201
  2. ACETAMINOPHEN [Concomitant]

REACTIONS (2)
  - LIP SWELLING [None]
  - URTICARIA [None]
